FAERS Safety Report 5628815-2 (Version None)
Quarter: 2008Q1

REPORT INFORMATION
  Report Type: 
  Country: None (occurrence: None)
  Receive Date: 20080215
  Receipt Date: 20080205
  Transmission Date: 20080703
  Serious: Yes (Hospitalization)
  Sender: FDA-Public Use
  Company Number: US-PFIZER INC-2008012873

PATIENT
  Sex: Female
  Weight: 70 kg

DRUGS (2)
  1. CHANTIX [Suspect]
     Indication: SMOKING CESSATION THERAPY
     Route: 048
  2. ATACAND [Concomitant]

REACTIONS (4)
  - FALL [None]
  - PANIC REACTION [None]
  - TREATMENT NONCOMPLIANCE [None]
  - WRIST FRACTURE [None]
